FAERS Safety Report 4467979-3 (Version None)
Quarter: 2004Q4

REPORT INFORMATION
  Report Type: 
  Country: None (occurrence: None)
  Receive Date: 20041004
  Receipt Date: 20040917
  Transmission Date: 20050328
  Serious: No
  Sender: FDA-Public Use
  Company Number: 2004SE05221

PATIENT
  Age: 15 Year
  Sex: Male

DRUGS (2)
  1. BUDESONIDE + FORMOTEROL (SYMBICORT) [Suspect]
     Indication: ASTHMA
     Dosage: 2 X 2
  2. SINGULAIR [Concomitant]

REACTIONS (1)
  - CUSHING'S SYNDROME [None]
